FAERS Safety Report 4717592-5 (Version None)
Quarter: 2005Q3

REPORT INFORMATION
  Report Type: 
  Country: None (occurrence: None)
  Receive Date: 20050712
  Receipt Date: 20050523
  Transmission Date: 20060218
  Serious: No
  Sender: FDA-Public Use
  Company Number: 2005S1000098

PATIENT
  Weight: 37 kg

DRUGS (2)
  1. CUBICIN [Suspect]
     Indication: STAPHYLOCOCCAL INFECTION
     Dosage: 8.6 MG/KG;X1;IV
     Route: 042
     Dates: start: 20050501
  2. VANCOMYCIN [Concomitant]

REACTIONS (3)
  - ACCIDENTAL OVERDOSE [None]
  - MEDICATION ERROR [None]
  - NO ADVERSE DRUG EFFECT [None]
